FAERS Safety Report 6630207-4 (Version None)
Quarter: 2010Q1

REPORT INFORMATION
  Report Type: 
  Country: None (occurrence: None)
  Receive Date: 20100311
  Receipt Date: 20100301
  Transmission Date: 20100710
  Serious: Yes (Hospitalization)
  Sender: FDA-Public Use
  Company Number: A0844019B

PATIENT
  Age: 66 Year
  Sex: Female
  Weight: 63.1 kg

DRUGS (2)
  1. TOPOTECAN [Suspect]
     Indication: METASTASES TO CENTRAL NERVOUS SYSTEM
     Dosage: 1.1MGM2 PER DAY
     Route: 048
     Dates: start: 20100203, end: 20100210
  2. RADIOTHERAPY [Suspect]
     Indication: METASTASES TO CENTRAL NERVOUS SYSTEM
     Dosage: 3GY PER DAY
     Route: 061
     Dates: start: 20100203, end: 20100216

REACTIONS (8)
  - ACCIDENTAL OVERDOSE [None]
  - BLOOD UREA INCREASED [None]
  - CONFUSIONAL STATE [None]
  - DECREASED APPETITE [None]
  - DEHYDRATION [None]
  - HAEMOGLOBIN DECREASED [None]
  - HYPOTENSION [None]
  - SOMNOLENCE [None]
